FAERS Safety Report 9536188 (Version 2)
Quarter: 2013Q3

REPORT INFORMATION
  Report Type: Spontaneous
  Country: US (occurrence: None)
  Receive Date: 20130507
  Receipt Date: 20130724
  Transmission Date: 20140515
  Serious: Yes (Hospitalization, Other)
  Sender: FDA-Public Use
  Company Number: PHEH2013US003572

PATIENT
  Age: 39 Year
  Sex: Female
  Weight: 65.8 kg

DRUGS (1)
  1. AFINITOR (RAD) UNKNOWN [Suspect]
     Indication: BREAST CANCER
     Route: 048
     Dates: start: 20121030

REACTIONS (3)
  - Pneumonia [None]
  - Malignant neoplasm progression [None]
  - Breast cancer [None]
